FAERS Safety Report 8616686-1 (Version None)
Quarter: 2012Q3

REPORT INFORMATION
  Report Type: 
  Country: None (occurrence: None)
  Receive Date: 20120823
  Receipt Date: 20120816
  Transmission Date: 20120928
  Serious: Yes (Other)
  Sender: FDA-Public Use
  Company Number: CO-PFIZER INC-2012204490

PATIENT
  Age: 47 Year
  Sex: Male

DRUGS (5)
  1. FLUOXETINE [Concomitant]
     Route: 065
  2. LEVOTHYROXINE [Concomitant]
     Indication: THYROID DISORDER
     Dosage: UNK
     Route: 048
  3. CALCITRIOL [Concomitant]
     Dosage: UNK
     Route: 065
  4. GENOTROPIN [Suspect]
     Indication: HYPOPITUITARISM
     Dosage: 1.3 MG, 1X/DAY AT NIGHT
     Route: 058
     Dates: start: 20060101
  5. VITAMIN B-12 [Concomitant]
     Dosage: UNK
     Route: 065

REACTIONS (6)
  - DANDRUFF [None]
  - IMMUNE SYSTEM DISORDER [None]
  - HYPERSENSITIVITY [None]
  - DIZZINESS [None]
  - EMOTIONAL DISORDER [None]
  - NAUSEA [None]
